FAERS Safety Report 9896138 (Version 1)
Quarter: 2014Q1

REPORT INFORMATION
  Report Type: Spontaneous
  Country: US (occurrence: US)
  Receive Date: 20140213
  Receipt Date: 20140213
  Transmission Date: 20141002
  Serious: No
  Sender: FDA-Public Use
  Company Number: US-BRISTOL-MYERS SQUIBB COMPANY-19729805

PATIENT
  Age: 47 Year
  Sex: Female
  Weight: 111.11 kg

DRUGS (5)
  1. ABATACEPT SUBQ INJECTION 125MG/ML [Suspect]
     Route: 058
  2. METHOTREXATE [Concomitant]
     Dosage: INJ 250/10ML
  3. PROTONIX [Concomitant]
     Dosage: PROTONIX PAK
  4. SINGULAIR [Concomitant]
     Dosage: SINGULAIR CHW 4MG
  5. ADVAIR DISKUS [Concomitant]
     Dosage: ADVAIR DISKUS AER500/50

REACTIONS (1)
  - Drug ineffective [Unknown]
